FAERS Safety Report 20700348 (Version 1)
Quarter: 2022Q2

REPORT INFORMATION
  Report Type: Spontaneous
  Country: CN (occurrence: CN)
  Receive Date: 20220412
  Receipt Date: 20220412
  Transmission Date: 20220721
  Serious: Yes (Other)
  Sender: FDA-Public Use
  Company Number: CN-BAYER-2022A051754

PATIENT
  Age: 28 Year
  Sex: Male
  Weight: 65 kg

DRUGS (1)
  1. AVELOX [Suspect]
     Active Substance: MOXIFLOXACIN HYDROCHLORIDE
     Indication: Gastroenteritis
     Dosage: 0.4 G, QD
     Route: 048
     Dates: start: 20220405, end: 20220405

REACTIONS (3)
  - Rash erythematous [Recovered/Resolved]
  - Ocular discomfort [Recovered/Resolved]
  - Off label use [None]

NARRATIVE: CASE EVENT DATE: 20220405
